FAERS Safety Report 10531249 (Version 1)
Quarter: 2014Q4

REPORT INFORMATION
  Report Type: Spontaneous
  Country: GB (occurrence: GB)
  Receive Date: 20141021
  Receipt Date: 20141021
  Transmission Date: 20150529
  Serious: Yes (Other)
  Sender: FDA-Public Use
  Company Number: GB-TEVA-515664ISR

PATIENT
  Age: 23 Year
  Sex: Male
  Weight: 60 kg

DRUGS (9)
  1. CHLORDIAZEPOXIDE [Concomitant]
     Active Substance: CHLORDIAZEPOXIDE
     Dates: start: 20140925, end: 20141002
  2. THIAMINE [Concomitant]
     Active Substance: THIAMINE
     Dates: start: 20140925
  3. OMEPRAZOLE. [Concomitant]
     Active Substance: OMEPRAZOLE
     Dates: start: 20140925
  4. STREPSILS (AMYLMETACRESOL\DICHLOROBENZYL ALCOHOL) [Concomitant]
     Active Substance: AMYLMETACRESOL\DICHLOROBENZYL ALCOHOL
     Dates: start: 20121009
  5. VITAMIN B SUBSTANCES [Concomitant]
     Dates: start: 20140925
  6. IBUPROFEN. [Concomitant]
     Active Substance: IBUPROFEN
     Dates: start: 20140925
  7. PARACETAMOL [Concomitant]
     Active Substance: ACETAMINOPHEN
     Dates: start: 20140925, end: 20141002
  8. OLANZAPINE. [Suspect]
     Active Substance: OLANZAPINE
     Dates: start: 20140620
  9. MIRTAZAPINE. [Concomitant]
     Active Substance: MIRTAZAPINE
     Dates: start: 20140620, end: 20140704

REACTIONS (2)
  - Thrombocytopenia [Unknown]
  - Bradycardia [Unknown]

NARRATIVE: CASE EVENT DATE: 20141002
